FAERS Safety Report 13451509 (Version 1)
Quarter: 2017Q2

REPORT INFORMATION
  Report Type: Spontaneous
  Country: US (occurrence: US)
  Receive Date: 20170418
  Receipt Date: 20170418
  Transmission Date: 20170830
  Serious: No
  Sender: FDA-Public Use
  Company Number: US-009507513-1704USA005480

PATIENT
  Age: 67 Year
  Sex: Male

DRUGS (10)
  1. CEFDINIR. [Concomitant]
     Active Substance: CEFDINIR
  2. CIPROFLOXACIN. [Concomitant]
     Active Substance: CIPROFLOXACIN
  3. CARVEDILOL. [Concomitant]
     Active Substance: CARVEDILOL
  4. LIDOCAINE (+) PRILOCAINE [Concomitant]
  5. TRAMADOL HYDROCHLORIDE. [Concomitant]
     Active Substance: TRAMADOL HYDROCHLORIDE
  6. CEPHALEXIN. [Concomitant]
     Active Substance: CEPHALEXIN
  7. HYDROCHLOROT [Concomitant]
     Active Substance: HYDROCHLOROTHIAZIDE
  8. ONDANSETRON [Concomitant]
     Active Substance: ONDANSETRON
  9. INTRON A [Suspect]
     Active Substance: INTERFERON ALFA-2B
     Indication: MALIGNANT MELANOMA
     Dosage: UNK; STRENGTH 18MU
     Dates: start: 20161205
  10. ACETAMINOPHEN (+) OXYCODONE HYDROCHLORIDE [Concomitant]
     Active Substance: ACETAMINOPHEN\OXYCODONE HYDROCHLORIDE

REACTIONS (1)
  - Influenza like illness [Not Recovered/Not Resolved]

NARRATIVE: CASE EVENT DATE: 20170412
